FAERS Safety Report 6034843-8 (Version None)
Quarter: 2009Q1

REPORT INFORMATION
  Report Type: 
  Country: None (occurrence: None)
  Receive Date: 20090108
  Receipt Date: 20090108
  Transmission Date: 20090719
  Serious: Yes (Other)
  Sender: FDA-Public Use
  Company Number: None

PATIENT
  Age: 52 Year
  Sex: Male
  Weight: 70.6 kg

DRUGS (26)
  1. ABILIFY [Suspect]
     Indication: BIPOLAR DISORDER
     Dosage: 20MG DAILY PO  OUTPT THERAPY D/C
     Route: 048
     Dates: end: 20080811
  2. ABILIFY [Suspect]
     Indication: DEPRESSION
     Dosage: 20MG DAILY PO  OUTPT THERAPY D/C
     Route: 048
     Dates: end: 20080811
  3. ACETAMINOPHEN [Concomitant]
  4. ASPIRIN [Concomitant]
  5. BISACODYL SUPPOSITORY [Concomitant]
  6. BUPIVACAINE HCL [Concomitant]
  7. CEFEPIME [Concomitant]
  8. CEFTRIAXONE [Concomitant]
  9. CLONAZEPAM [Concomitant]
  10. ENOXAPARIN SODIUM [Concomitant]
  11. FAMOTIDINE [Concomitant]
  12. FUROSEMIDE [Concomitant]
  13. GLUCAGON [Concomitant]
  14. HEPARIN [Concomitant]
  15. REGULAR INSULIN [Concomitant]
  16. LABETOLOL [Concomitant]
  17. LORAZEPAM [Concomitant]
  18. MILK OF MAGNESIA [Concomitant]
  19. METHYLPREDNISOLONE SODIUM SUCCINATE [Concomitant]
  20. MIDAZOLAM [Concomitant]
  21. MORPHINE [Concomitant]
  22. ONDANSETRON [Concomitant]
  23. POTASSIUM CHLORIDE [Concomitant]
  24. PROPOFOL [Concomitant]
  25. VANCOMYCIN HYDROCHLORIDE [Concomitant]
  26. VENLAFAXINE [Concomitant]

REACTIONS (1)
  - EXTRAPYRAMIDAL DISORDER [None]
